FAERS Safety Report 13512650 (Version 1)
Quarter: 2017Q2

REPORT INFORMATION
  Report Type: Spontaneous
  Country: US (occurrence: US)
  Receive Date: 20170504
  Receipt Date: 20170504
  Transmission Date: 20170830
  Serious: Yes (Hospitalization)
  Sender: FDA-Public Use
  Company Number: None

PATIENT
  Age: 56 Year
  Sex: Female
  Weight: 100.5 kg

DRUGS (10)
  1. ATIVAN [Concomitant]
     Active Substance: LORAZEPAM
  2. ZITHROMAX [Concomitant]
     Active Substance: AZITHROMYCIN DIHYDRATE
  3. CA +VITD [Concomitant]
  4. DOXORUBICIN 106MG [Suspect]
     Active Substance: DOXORUBICIN
     Indication: CHEMOTHERAPY
     Dosage: 50MG/M2 X2.12M2 Q21 DAYS IV
     Route: 042
  5. ALBUTEROL. [Concomitant]
     Active Substance: ALBUTEROL
  6. SYNTHROID [Concomitant]
     Active Substance: LEVOTHYROXINE SODIUM
  7. ZESTRIL [Concomitant]
     Active Substance: LISINOPRIL
  8. EMLA [Concomitant]
     Active Substance: LIDOCAINE\PRILOCAINE
  9. LEVAQUIN [Concomitant]
     Active Substance: LEVOFLOXACIN
  10. MEVACOR [Concomitant]
     Active Substance: LOVASTATIN

REACTIONS (4)
  - Sepsis [None]
  - Cardiogenic shock [None]
  - Multiple organ dysfunction syndrome [None]
  - Intestinal ischaemia [None]

NARRATIVE: CASE EVENT DATE: 20160924
